FAERS Safety Report 20975791 (Version 1)
Quarter: 2022Q2

REPORT INFORMATION
  Report Type: Spontaneous
  Country: IN (occurrence: IN)
  Receive Date: 20220617
  Receipt Date: 20220617
  Transmission Date: 20220721
  Serious: Yes (Other)
  Sender: FDA-Public Use
  Company Number: IN-MYLANLABS-2022M1046109

PATIENT
  Age: 3 Decade
  Sex: Female

DRUGS (7)
  1. HYDROXYCHLOROQUINE [Suspect]
     Active Substance: HYDROXYCHLOROQUINE
     Indication: Subacute cutaneous lupus erythematosus
     Dosage: 6 MILLIGRAM/KILOGRAM, QD (DIVIDED INTO TWO DOSES)
     Route: 048
  2. METHOTREXATE [Suspect]
     Active Substance: METHOTREXATE
     Indication: Subacute cutaneous lupus erythematosus
     Dosage: 0.3 MILLIGRAM/KILOGRAM, QW
     Route: 048
  3. CYCLOSPORINE [Suspect]
     Active Substance: CYCLOSPORINE
     Indication: Subacute cutaneous lupus erythematosus
     Dosage: 5 MILLIGRAM/KILOGRAM, QD
     Route: 048
  4. PREDNISOLONE [Concomitant]
     Active Substance: PREDNISOLONE
     Indication: Subacute cutaneous lupus erythematosus
     Dosage: 1 MILLIGRAM/KILOGRAM, QD
     Route: 048
  5. PREDNISOLONE [Concomitant]
     Active Substance: PREDNISOLONE
     Dosage: 0.5 MILLIGRAM/KILOGRAM, QD
     Route: 048
  6. NIFEDIPINE [Concomitant]
     Active Substance: NIFEDIPINE
     Indication: Subacute cutaneous lupus erythematosus
     Dosage: 10-20MG, QD
     Route: 048
  7. NIFEDIPINE [Concomitant]
     Active Substance: NIFEDIPINE
     Dosage: UNK, DOSE INCREASED
     Route: 048

REACTIONS (2)
  - Drug ineffective [Unknown]
  - Headache [Unknown]
